FAERS Safety Report 18246081 (Version 1)
Quarter: 2020Q3

REPORT INFORMATION
  Report Type: Report from Study
  Country: BR (occurrence: BR)
  Receive Date: 20200909
  Receipt Date: 20200909
  Transmission Date: 20201103
  Serious: Yes (Other)
  Sender: FDA-Public Use
  Company Number: NVSC2020BR244620

PATIENT

DRUGS (1)
  1. DIOVAN AMLO FIX [Suspect]
     Active Substance: AMLODIPINE\VALSARTAN
     Indication: PRODUCT USED FOR UNKNOWN INDICATION
     Dosage: UNK (STARTED MORE THAN 10 YEARS AGO)
     Route: 065

REACTIONS (6)
  - Hypertension [Unknown]
  - Diabetes mellitus [Unknown]
  - Nervousness [Recovering/Resolving]
  - Influenza [Unknown]
  - Malaise [Unknown]
  - Drug ineffective [Unknown]
